FAERS Safety Report 5808219-X (Version None)
Quarter: 2008Q3

REPORT INFORMATION
  Report Type: 
  Country: None (occurrence: None)
  Receive Date: 20080709
  Receipt Date: 20080620
  Transmission Date: 20090109
  Serious: Yes (Hospitalization)
  Sender: FDA-Public Use
  Company Number: D-08-0039

PATIENT
  Age: 84 Year
  Sex: Male

DRUGS (12)
  1. OXYBUTYNIN 5MG (USL) [Suspect]
     Indication: NEUROGENIC BLADDER
     Dosage: 5 MG Q AM,10 MG Q PM,ORALLY
     Route: 048
     Dates: start: 20080501, end: 20080606
  2. VERAPAMIL [Concomitant]
  3. LISINOPRIL [Concomitant]
  4. LAMICTAL [Concomitant]
  5. XANAX [Concomitant]
  6. PERCOCET [Concomitant]
  7. CELEBREX [Concomitant]
  8. PROTONIX [Concomitant]
  9. ACYCLOVIR [Concomitant]
  10. PROSCAR [Concomitant]
  11. FLOMAX [Concomitant]
  12. COUMADIN [Concomitant]

REACTIONS (9)
  - AGITATION [None]
  - ASTHENIA [None]
  - DIZZINESS [None]
  - DRY SKIN [None]
  - ERYTHEMA [None]
  - LETHARGY [None]
  - SPEECH DISORDER [None]
  - TACHYCARDIA [None]
  - THINKING ABNORMAL [None]
